FAERS Safety Report 8746380 (Version 2)
Quarter: 2012Q4

REPORT INFORMATION
  Report Type: 
  Country: US (occurrence: US)
  Receive Date: 20120827
  Receipt Date: 20121121
  Transmission Date: 20130627
  Serious: Yes (Other)
  Sender: FDA-Public Use
  Company Number: US-US-EMD SERONO, INC.-7156243

PATIENT
  Sex: Male

DRUGS (2)
  1. REBIF [Suspect]
     Indication: MULTIPLE SCLEROSIS
     Route: 058
     Dates: start: 20070308
  2. TAR SHAMPOO WITH INL RINSE [Concomitant]
     Indication: SKIN DISORDER

REACTIONS (4)
  - Hernia [Recovering/Resolving]
  - Nephrolithiasis [Unknown]
  - Hypertonic bladder [Recovering/Resolving]
  - Injection site pain [Recovering/Resolving]
